FAERS Safety Report 10407044 (Version 2)
Quarter: 2014Q3

REPORT INFORMATION
  Report Type: Spontaneous
  Country: US (occurrence: US)
  Receive Date: 20140825
  Receipt Date: 20140825
  Transmission Date: 20150326
  Serious: Yes (Hospitalization)
  Sender: FDA-Public Use
  Company Number: US-GLAXOSMITHKLINE-A0730962A

PATIENT
  Sex: Male
  Weight: 118.2 kg

DRUGS (10)
  1. VITAMIN B12 [Concomitant]
     Active Substance: CYANOCOBALAMIN
  2. CINNAMON. [Concomitant]
     Active Substance: CINNAMON
  3. GLUCOPHAGE [Concomitant]
     Active Substance: METFORMIN HYDROCHLORIDE
  4. VITAMIN E [Concomitant]
     Active Substance: .ALPHA.-TOCOPHEROL
  5. AVANDIA [Suspect]
     Active Substance: ROSIGLITAZONE MALEATE
     Indication: TYPE 2 DIABETES MELLITUS
     Route: 048
     Dates: start: 200304, end: 200712
  6. METFORMIN [Concomitant]
     Active Substance: METFORMIN HYDROCHLORIDE
  7. AMARYL [Concomitant]
     Active Substance: GLIMEPIRIDE
  8. FOLIC ACID. [Concomitant]
     Active Substance: FOLIC ACID
  9. OMEGA 3 [Concomitant]
     Active Substance: OMEGA-3 FATTY ACIDS
  10. SAW PALMETTO [Concomitant]
     Active Substance: SAW PALMETTO

REACTIONS (7)
  - Peripheral swelling [Unknown]
  - Coronary artery disease [Unknown]
  - Arteriosclerosis coronary artery [Unknown]
  - Injury [Unknown]
  - Oedema [Unknown]
  - Myocardial infarction [Unknown]
  - Normochromic normocytic anaemia [Unknown]
